FAERS Safety Report 5507442-1 (Version None)
Quarter: 2007Q4

REPORT INFORMATION
  Report Type: 
  Country: None (occurrence: None)
  Receive Date: 20071106
  Receipt Date: 20040423
  Transmission Date: 20080405
  Serious: Yes (Other)
  Sender: FDA-Public Use
  Company Number: US-ASTRAZENECA-2004UW06681

PATIENT
  Age: 62 Year
  Sex: Female
  Weight: 92 kg

DRUGS (4)
  1. CRESTOR [Suspect]
     Indication: HYPERLIPIDAEMIA
     Route: 048
     Dates: start: 20031230, end: 20040329
  2. CLARINEX [Concomitant]
     Indication: MULTIPLE ALLERGIES
  3. PROPRANOLOL [Concomitant]
     Indication: TREMOR
     Route: 048
     Dates: start: 20030301
  4. PROSCAR [Concomitant]
     Indication: HIDRADENITIS
     Route: 048

REACTIONS (6)
  - ALANINE AMINOTRANSFERASE INCREASED [None]
  - DYSPNOEA [None]
  - JOINT SWELLING [None]
  - MUSCULAR WEAKNESS [None]
  - POLLAKIURIA [None]
  - WEIGHT INCREASED [None]
